FAERS Safety Report 20024812 (Version 1)
Quarter: 2021Q4

REPORT INFORMATION
  Report Type: Spontaneous
  Country: MK (occurrence: MK)
  Receive Date: 20211102
  Receipt Date: 20211102
  Transmission Date: 20220303
  Serious: Yes (Other)
  Sender: FDA-Public Use
  Company Number: MK-PFIZER INC-202101474296

PATIENT
  Age: 40 Year
  Sex: Female

DRUGS (1)
  1. ELELYSO [Suspect]
     Active Substance: TALIGLUCERASE ALFA
     Dosage: 60 IU/KG, EVERY TWO WEEKS
     Dates: start: 201910

REACTIONS (1)
  - Colorectal adenocarcinoma [Unknown]

NARRATIVE: CASE EVENT DATE: 20200201
